FAERS Safety Report 4996391-3 (Version None)
Quarter: 2006Q2

REPORT INFORMATION
  Report Type: 
  Country: None (occurrence: None)
  Receive Date: 20060509
  Receipt Date: 20060427
  Transmission Date: 20061013
  Serious: Yes (Other)
  Sender: FDA-Public Use
  Company Number: DE-JNJFOC-20060500406

PATIENT
  Age: 42 Year
  Sex: Male

DRUGS (6)
  1. REMICADE [Suspect]
     Route: 042
  2. BELOC-ZOC [Concomitant]
     Route: 065
  3. BELOC-ZOC [Concomitant]
     Indication: HYPERTENSION
     Route: 065
  4. METHOTREXATE [Concomitant]
     Route: 065
  5. PREDNISOLONE [Concomitant]
     Route: 065
  6. ISONIAZID [Concomitant]
     Indication: TUBERCULIN TEST POSITIVE

REACTIONS (4)
  - ARTHRALGIA [None]
  - CHILLS [None]
  - PHARYNGITIS [None]
  - PYREXIA [None]
